FAERS Safety Report 9061897 (Version 1)
Quarter: 2013Q1

REPORT INFORMATION
  Report Type: Report from Study
  Country: US (occurrence: US)
  Receive Date: 20130129
  Receipt Date: 20130129
  Transmission Date: 20140127
  Serious: No
  Sender: FDA-Public Use
  Company Number: US-ABBOTT-12P-163-0939467-00

PATIENT
  Age: 66 Year
  Sex: Female

DRUGS (6)
  1. HUMIRA 40 MG/ 0.8 ML PRE-FILLED SYRINGE [Suspect]
     Indication: CROHN^S DISEASE
     Dates: start: 201101
  2. PREMARIN [Concomitant]
     Indication: HORMONE REPLACEMENT THERAPY
     Dosage: DAILY
  3. COSOPT [Concomitant]
     Indication: GLAUCOMA
     Dosage: 1 DROP TO EACH EYE TWICE IN A DAY
     Route: 047
  4. TRAVATAN [Concomitant]
     Indication: GLAUCOMA
     Dosage: 1 DROP TO EACH EYE BEFORE BED
     Route: 047
  5. VIT B 12 [Concomitant]
     Indication: PRODUCT USED FOR UNKNOWN INDICATION
     Dosage: MONTHLY
  6. IRON SUPPLEMEMNT [Concomitant]
     Indication: ANAEMIA
     Dosage: DAILY

REACTIONS (3)
  - Crohn^s disease [Not Recovered/Not Resolved]
  - Diarrhoea [Recovering/Resolving]
  - Abdominal pain [Recovering/Resolving]
